FAERS Safety Report 4766874-X (Version None)
Quarter: 2005Q3

REPORT INFORMATION
  Report Type: 
  Country: None (occurrence: None)
  Receive Date: 20050909
  Receipt Date: 20050817
  Transmission Date: 20060218
  Serious: Yes (Death)
  Sender: FDA-Public Use
  Company Number: 2005117644

PATIENT
  Age: 6 Year
  Sex: Female
  Weight: 20 kg

DRUGS (7)
  1. HALCION [Suspect]
     Indication: ILL-DEFINED DISORDER
  2. NITRAZEPAM [Suspect]
     Indication: ILL-DEFINED DISORDER
  3. SILECE (FLUNITRAZEPAM) [Suspect]
     Indication: ILL-DEFINED DISORDER
  4. DEPAS (ETIZOLAM) [Suspect]
     Indication: ILL-DEFINED DISORDER
  5. LEVOTOMIN (LEVOMEPROMAZINE MALEATE) [Suspect]
     Indication: ILL-DEFINED DISORDER
  6. PAXIL [Suspect]
     Indication: ILL-DEFINED DISORDER
  7. BUFFERIN (ACETYLSALICYCLIC ACID, ALUMINIUM GLYCINATE, MAGNESIUM CARBON [Concomitant]

REACTIONS (12)
  - CARDIAC DISORDER [None]
  - DRUG LEVEL INCREASED [None]
  - HEPATIC HAEMORRHAGE [None]
  - INJURY ASPHYXIATION [None]
  - ORAL MUCOSAL PETECHIAE [None]
  - PETECHIAE [None]
  - PLEURAL DISORDER [None]
  - PULMONARY HAEMORRHAGE [None]
  - RENAL HAEMORRHAGE [None]
  - SKIN DISCOLOURATION [None]
  - THYMUS DISORDER [None]
  - VICTIM OF HOMICIDE [None]
